FAERS Safety Report 5444526-0 (Version None)
Quarter: 2007Q3

REPORT INFORMATION
  Report Type: 
  Country: None (occurrence: None)
  Receive Date: 20070904
  Receipt Date: 20070904
  Transmission Date: 20080115
  Serious: Yes (Hospitalization, Other)
  Sender: FDA-Public Use
  Company Number: None

PATIENT
  Age: 65 Year
  Sex: Male
  Weight: 88.4514 kg

DRUGS (12)
  1. IODIXANOL 150 MG1/ML AMERSHAM HEALTH [Suspect]
     Indication: ANGIOPLASTY
     Dosage: 150ML ONCE IV
     Route: 042
     Dates: start: 20061228, end: 20061228
  2. INDOMETHACIN [Suspect]
     Indication: GOUT
     Dosage: 75MG DAILY PO
     Route: 048
  3. ALLOPURINOL [Concomitant]
  4. FEXOFENADINE [Concomitant]
  5. WARFARIN SODIUM [Concomitant]
  6. TRIAMTERENE [Concomitant]
  7. DIGOXIN [Concomitant]
  8. NADOLOL [Concomitant]
  9. ATORVASTATIN [Concomitant]
  10. ZETIA [Concomitant]
  11. PROCHLOROPERAZINE [Concomitant]
  12. ALBUTEROL [Concomitant]

REACTIONS (3)
  - ACUTE RESPIRATORY DISTRESS SYNDROME [None]
  - CONTRAST MEDIA REACTION [None]
  - RENAL FAILURE ACUTE [None]
